FAERS Safety Report 9306471 (Version 4)
Quarter: 2013Q4

REPORT INFORMATION
  Report Type: Spontaneous
  Country: US (occurrence: None)
  Receive Date: 20130305
  Receipt Date: 20131231
  Transmission Date: 20140711
  Serious: Yes (Other)
  Sender: FDA-Public Use
  Company Number: ADR-2013-00192

PATIENT
  Sex: Female

DRUGS (1)
  1. BACLOFEN [Suspect]
     Indication: MUSCLE SPASTICITY

REACTIONS (9)
  - Burning sensation [None]
  - Post procedural complication [None]
  - Muscle spasms [None]
  - Condition aggravated [None]
  - Paralysis [None]
  - Musculoskeletal stiffness [None]
  - Abasia [None]
  - Diplegia [None]
  - Product substitution issue [None]
